FAERS Safety Report 24262231 (Version 2)
Quarter: 2024Q3

REPORT INFORMATION
  Report Type: Spontaneous
  Country: US (occurrence: US)
  Receive Date: 20240829
  Receipt Date: 20240905
  Transmission Date: 20241016
  Serious: Yes (Death)
  Sender: RANBAXY
  Company Number: US-SUN PHARMACEUTICAL INDUSTRIES LTD-2024R1-464674

PATIENT
  Age: 77 Year
  Sex: Female

DRUGS (1)
  1. PREDNISONE [Suspect]
     Active Substance: PREDNISONE
     Indication: Myasthenia gravis
     Dosage: UNK
     Route: 065

REACTIONS (1)
  - Stress cardiomyopathy [Fatal]
